FAERS Safety Report 10141603 (Version 6)
Quarter: 2015Q2

REPORT INFORMATION
  Report Type: Report from Study
  Country: FR (occurrence: FR)
  Receive Date: 20140429
  Receipt Date: 20150616
  Transmission Date: 20150821
  Serious: Yes (Hospitalization, Other)
  Sender: FDA-Public Use
  Company Number: FR-GLAXOSMITHKLINE-Z0022554A

PATIENT
  Age: 42 Year
  Sex: Female
  Weight: 38 kg

DRUGS (4)
  1. PANITUMUMAB [Suspect]
     Active Substance: PANITUMUMAB
     Indication: COLORECTAL CANCER
     Dosage: 6 MG/KG, CYC
     Route: 042
     Dates: start: 20140407
  2. DABRAFENIB [Suspect]
     Active Substance: DABRAFENIB
     Dosage: 150 MG, UNK
     Route: 048
     Dates: start: 20150420, end: 20150420
  3. DABRAFENIB [Suspect]
     Active Substance: DABRAFENIB
     Dosage: 200 MG, UNK
     Route: 048
     Dates: start: 20140424
  4. DABRAFENIB [Suspect]
     Active Substance: DABRAFENIB
     Indication: COLORECTAL CANCER
     Dosage: 150 MG, BID
     Route: 048
     Dates: start: 20140407, end: 20140419

REACTIONS (2)
  - Diarrhoea haemorrhagic [Recovered/Resolved]
  - Pyrexia [Recovered/Resolved]

NARRATIVE: CASE EVENT DATE: 20140417
